FAERS Safety Report 9166097 (Version 1)
Quarter: 2013Q1

REPORT INFORMATION
  Report Type: Spontaneous
  Country: IT (occurrence: IT)
  Receive Date: 20130315
  Receipt Date: 20130315
  Transmission Date: 20140127
  Serious: Yes (Hospitalization)
  Sender: FDA-Public Use
  Company Number: IT-JNJFOC-20130306673

PATIENT
  Age: 76 Year
  Sex: Female

DRUGS (8)
  1. IBUPROFEN (UNSPECIFIED) [Suspect]
     Route: 048
  2. IBUPROFEN (UNSPECIFIED) [Suspect]
     Indication: INFLUENZA
     Route: 048
     Dates: start: 20130107, end: 20130107
  3. ZANEDIP [Concomitant]
  4. ALLOPURINOL [Concomitant]
  5. IDROQUARK [Concomitant]
  6. HUMALOG INSULIN [Concomitant]
  7. LANTUS INSULIN [Concomitant]
  8. ARMILLA [Concomitant]

REACTIONS (4)
  - Erythema [Recovering/Resolving]
  - Face oedema [Recovering/Resolving]
  - Rash generalised [Recovering/Resolving]
  - Urticaria [Recovering/Resolving]
